FAERS Safety Report 15889804 (Version 2)
Quarter: 2019Q2

REPORT INFORMATION
  Report Type: Spontaneous
  Country: US (occurrence: US)
  Receive Date: 20190130
  Receipt Date: 20190401
  Transmission Date: 20190711
  Serious: No
  Sender: FDA-Public Use
  Company Number: US-ELI_LILLY_AND_COMPANY-US201901006665

PATIENT
  Age: 52 Year
  Sex: Female

DRUGS (2)
  1. GALCANEZUMAB 120MG [Suspect]
     Active Substance: GALCANEZUMAB
     Indication: HEADACHE
     Dosage: 240 MG, SINGLE
     Route: 065
  2. GALCANEZUMAB 120MG [Suspect]
     Active Substance: GALCANEZUMAB
     Dosage: 120 UNK

REACTIONS (2)
  - Injection site pruritus [Recovered/Resolved]
  - Urticaria [Unknown]

NARRATIVE: CASE EVENT DATE: 20190106
